FAERS Safety Report 25410534 (Version 1)
Quarter: 2025Q2

REPORT INFORMATION
  Report Type: Spontaneous
  Country: US (occurrence: US)
  Receive Date: 20250608
  Receipt Date: 20250608
  Transmission Date: 20250716
  Serious: No
  Sender: APOTEX
  Company Number: US-APOTEX-2025AP007988

PATIENT
  Age: 24 Year
  Sex: Female

DRUGS (2)
  1. MIRTAZAPINE [Suspect]
     Active Substance: MIRTAZAPINE
     Indication: Generalised anxiety disorder
     Dosage: 7.5 MILLIGRAM, Q.H.S.
     Route: 065
  2. ARIPIPRAZOLE [Suspect]
     Active Substance: ARIPIPRAZOLE
     Indication: Generalised anxiety disorder
     Dosage: 1 MILLIGRAM, QD
     Route: 065

REACTIONS (3)
  - Aggression [Unknown]
  - Tremor [Unknown]
  - Increased appetite [Unknown]
